FAERS Safety Report 9891887 (Version 2)
Quarter: 2014Q3

REPORT INFORMATION
  Report Type: Spontaneous
  Country: FR (occurrence: FR)
  Receive Date: 20140212
  Receipt Date: 20140905
  Transmission Date: 20150326
  Serious: Yes (Hospitalization)
  Sender: FDA-Public Use
  Company Number: PHHY2014FR015852

PATIENT
  Age: 60 Year
  Sex: Male

DRUGS (8)
  1. ARANESP [Concomitant]
     Active Substance: DARBEPOETIN ALFA
     Dosage: UNK (FOR EVERY 15 DAYS)
  2. CERTICAN [Suspect]
     Active Substance: EVEROLIMUS
     Dosage: 0.35 MG, BID
     Route: 048
     Dates: start: 201312
  3. PHYSIOTENS [Suspect]
     Active Substance: MOXONIDINE
     Dosage: 0.4 MG, QD (LONG TERM USE)
     Route: 048
  4. INEXIUM//ESOMEPRAZOLE SODIUM [Suspect]
     Active Substance: ESOMEPRAZOLE
     Dosage: 20 MG, QD (LONG TERM USE)
     Route: 048
  5. MYFORTIC [Suspect]
     Active Substance: MYCOPHENOLATE SODIUM
     Dosage: 360 MG,( LONG TERM USE)
     Route: 048
  6. CERTICAN [Suspect]
     Active Substance: EVEROLIMUS
     Dosage: 0.75 MG, BID
     Dates: start: 201405
  7. ISOPTIN [Suspect]
     Active Substance: VERAPAMIL HYDROCHLORIDE
     Dosage: 240 MG, QD (LONG TERM USE)
     Route: 048
  8. COZAAR [Suspect]
     Active Substance: LOSARTAN POTASSIUM
     Dosage: 100 MG, QD, (LONG TERM USE)
     Route: 048

REACTIONS (1)
  - Lung disorder [Recovered/Resolved]

NARRATIVE: CASE EVENT DATE: 20140118
